FAERS Safety Report 6120123-9 (Version None)
Quarter: 2009Q1

REPORT INFORMATION
  Report Type: 
  Country: None (occurrence: None)
  Receive Date: 20090316
  Receipt Date: 20090306
  Transmission Date: 20090719
  Serious: Yes (Hospitalization, Disabling)
  Sender: FDA-Public Use
  Company Number: US-MERCK-0812USA00489

PATIENT
  Age: 82 Year
  Sex: Male

DRUGS (7)
  1. FOSAMAX [Suspect]
     Indication: OSTEOPOROSIS
     Route: 048
     Dates: start: 20020101, end: 20070801
  2. LISINOPRIL [Concomitant]
     Indication: HYPERTENSION
     Route: 065
     Dates: start: 19700101
  3. LASIX [Concomitant]
     Indication: POLYURIA
     Route: 065
     Dates: start: 20010101
  4. ARICEPT [Concomitant]
     Indication: DEMENTIA ALZHEIMER'S TYPE
     Route: 065
     Dates: start: 20020101
  5. ZOCOR [Concomitant]
     Indication: HYPERCHOLESTEROLAEMIA
     Route: 065
     Dates: start: 19700101
  6. CITALOPRAM RL [Concomitant]
     Indication: DEPRESSION
     Route: 065
     Dates: start: 20020101
  7. PLAVIX [Concomitant]
     Indication: ANTICOAGULANT THERAPY
     Route: 065

REACTIONS (11)
  - BONE DISORDER [None]
  - CARDIAC DISORDER [None]
  - DEPRESSION [None]
  - EXOSTOSIS [None]
  - GLAUCOMA [None]
  - JOINT RANGE OF MOTION DECREASED [None]
  - ORAL DISCOMFORT [None]
  - OSTEONECROSIS [None]
  - PAIN IN JAW [None]
  - PARAESTHESIA ORAL [None]
  - TRISMUS [None]
